FAERS Safety Report 7387283-3 (Version None)
Quarter: 2011Q1

REPORT INFORMATION
  Report Type: 
  Country: None (occurrence: None)
  Receive Date: 20110331
  Receipt Date: 20110321
  Transmission Date: 20110831
  Serious: Yes (Hospitalization)
  Sender: FDA-Public Use
  Company Number: IE-BAXTER-2011BH007804

PATIENT
  Sex: Female

DRUGS (23)
  1. CIPROFLOXACIN LACTATE AND SODIUM CHLORIDE INJECTION [Suspect]
     Route: 065
  2. CIPROFLOXACIN LACTATE AND SODIUM CHLORIDE INJECTION [Suspect]
     Route: 065
  3. VANCOMYCIN 1000 MG IN 100 ML GLUCOSE 5% [Suspect]
     Route: 065
  4. DEXTROSE 5% [Suspect]
     Route: 065
  5. VANCOMYCIN 1000 MG IN 100 ML GLUCOSE 5% [Suspect]
     Indication: OSTEOMYELITIS
     Route: 065
  6. VANCOMYCIN 1000 MG IN 100 ML GLUCOSE 5% [Suspect]
     Route: 065
  7. SODIUM CHLORIDE 0.9% IN PLASTIC CONTAINER [Suspect]
     Indication: OSTEOMYELITIS
     Route: 065
  8. SODIUM CHLORIDE 0.9% IN PLASTIC CONTAINER [Suspect]
     Route: 065
  9. DEXTROSE 5% [Suspect]
     Indication: OSTEOMYELITIS
     Route: 065
  10. CIPROFLOXACIN LACTATE AND SODIUM CHLORIDE INJECTION [Suspect]
     Route: 065
  11. DEXTROSE 5% [Suspect]
     Route: 065
  12. MEROPENEM 100 MG IN 100 ML SODIUM CHLORIDE 0.9% [Suspect]
     Indication: OSTEOMYELITIS
     Route: 065
  13. VANCOMYCIN 1000 MG IN 100 ML GLUCOSE 5% [Suspect]
     Route: 065
  14. SODIUM CHLORIDE 0.9% IN PLASTIC CONTAINER [Suspect]
     Route: 065
  15. DEXTROSE 5% [Suspect]
     Route: 065
  16. CIPROFLOXACIN LACTATE AND SODIUM CHLORIDE INJECTION [Suspect]
     Route: 065
  17. VANCOMYCIN 1000 MG IN 100 ML GLUCOSE 5% [Suspect]
     Route: 065
  18. VANCOMYCIN 1000 MG IN 100 ML GLUCOSE 5% [Suspect]
     Route: 065
  19. DEXTROSE 5% [Suspect]
     Route: 065
  20. CIPROFLOXACIN LACTATE AND SODIUM CHLORIDE INJECTION [Suspect]
     Indication: OSTEOMYELITIS
     Route: 065
  21. VANCOMYCIN 1000 MG IN 100 ML GLUCOSE 5% [Suspect]
     Route: 065
  22. VANCOMYCIN 1000 MG IN 100 ML GLUCOSE 5% [Suspect]
     Route: 065
  23. VANCOMYCIN 1000 MG IN 100 ML GLUCOSE 5% [Suspect]
     Route: 065

REACTIONS (1)
  - CHILLS [None]
